FAERS Safety Report 23851739 (Version 1)
Quarter: 2024Q2

REPORT INFORMATION
  Report Type: Spontaneous
  Country: CA (occurrence: CA)
  Receive Date: 20240514
  Receipt Date: 20240514
  Transmission Date: 20240716
  Serious: Yes (Hospitalization, Other)
  Sender: FDA-Public Use
  Company Number: CA-PFIZER INC-202400097598

PATIENT

DRUGS (1)
  1. INFLECTRA [Suspect]
     Active Substance: INFLIXIMAB-DYYB
     Indication: Crohn^s disease
     Dosage: 400 MG, AT WEEK 0, 2 AND 6 THEN Q (EVERY) 8 WEEKS
     Route: 042
     Dates: start: 20240415

REACTIONS (2)
  - Small intestinal obstruction [Unknown]
  - Off label use [Unknown]

NARRATIVE: CASE EVENT DATE: 20240401
